FAERS Safety Report 4399856-0 (Version None)
Quarter: 2004Q3

REPORT INFORMATION
  Report Type: 
  Country: None (occurrence: None)
  Receive Date: 20040714
  Receipt Date: 20031208
  Transmission Date: 20050211
  Serious: Yes (Hospitalization, Other)
  Sender: FDA-Public Use
  Company Number: 2003189331JP

PATIENT
  Age: 61 Year
  Sex: Male

DRUGS (4)
  1. CAMPTOSAR [Suspect]
     Indication: COLORECTAL CANCER
     Dosage: 100 MG, CYCLIC, IV DRIP
     Route: 041
     Dates: start: 20031015, end: 20031029
  2. TS-1 [Concomitant]
  3. ZANTAC [Concomitant]
  4. KYTRIL [Concomitant]

REACTIONS (4)
  - DECREASED APPETITE [None]
  - DRUG INTERACTION [None]
  - INTERSTITIAL LUNG DISEASE [None]
  - NEUTROPENIA [None]
